FAERS Safety Report 17645856 (Version 6)
Quarter: 2021Q3

REPORT INFORMATION
  Report Type: Report from Study
  Country: US (occurrence: US)
  Receive Date: 20200408
  Receipt Date: 20210917
  Transmission Date: 20211014
  Serious: Yes (Other)
  Sender: FDA-Public Use
  Company Number: NVSC2020US091669

PATIENT
  Age: 39 Year
  Sex: Female

DRUGS (1)
  1. ILARIS [Suspect]
     Active Substance: CANAKINUMAB
     Indication: CRYOPYRIN ASSOCIATED PERIODIC SYNDROME
     Dosage: 150 MG, QMO
     Route: 058
     Dates: start: 20191216

REACTIONS (9)
  - Suspected COVID-19 [Unknown]
  - Injection site rash [Unknown]
  - Ocular hyperaemia [Unknown]
  - Thermal burns of eye [Unknown]
  - Therapeutic response shortened [Unknown]
  - Vision blurred [Unknown]
  - Hypoaesthesia [Unknown]
  - Pain in extremity [Unknown]
  - Paraesthesia [Unknown]

NARRATIVE: CASE EVENT DATE: 20210825
